FAERS Safety Report 23400437 (Version 1)
Quarter: 2024Q1

REPORT INFORMATION
  Report Type: Other
  Country: DE (occurrence: None)
  Receive Date: 20240115
  Receipt Date: 20240115
  Transmission Date: 20240410
  Serious: No
  Sender: FDA-Public Use
  Company Number: DE-ROCHE-3096544

PATIENT
  Age: 18 Year
  Sex: Female

DRUGS (4)
  1. OCREVUS [Suspect]
     Active Substance: OCRELIZUMAB
     Indication: Relapsing-remitting multiple sclerosis
     Dosage: SUBSEQUENT DOSE ON 17/MAY/2021 (2ND INITIAL DOSE), 11/NOV/2021 (1ST MAINTENANCE DOSE)
     Route: 042
     Dates: start: 20210503
  2. FERROUS GLYCINE SULFATE [Concomitant]
     Active Substance: FERROUS GLYCINE SULFATE
  3. VITAMIN D3 [Concomitant]
     Active Substance: CHOLECALCIFEROL
  4. AGNUS CASTUS [Concomitant]

REACTIONS (9)
  - Acne pustular [Recovered/Resolved]
  - Visual impairment [Recovered/Resolved]
  - Pallor [Recovered/Resolved]
  - Iron deficiency [Recovered/Resolved]
  - Arthralgia [Recovered/Resolved]
  - Headache [Recovered/Resolved]
  - Nausea [Recovered/Resolved]
  - COVID-19 [Recovered/Resolved]
  - Nasopharyngitis [Not Recovered/Not Resolved]

NARRATIVE: CASE EVENT DATE: 20210503
